FAERS Safety Report 14469007 (Version 3)
Quarter: 2018Q1

REPORT INFORMATION
  Report Type: Report from Study
  Country: DE (occurrence: DE)
  Receive Date: 20180131
  Receipt Date: 20180305
  Transmission Date: 20180509
  Serious: Yes (Other)
  Sender: FDA-Public Use
  Company Number: PHHY2018DE010460

PATIENT
  Sex: Female
  Weight: 78 kg

DRUGS (11)
  1. COSENTYX [Suspect]
     Active Substance: SECUKINUMAB
     Indication: PSORIASIS
     Dosage: 300 MG, UNK (PER APPLICATION, PRE-FILLED PEN)
     Route: 065
     Dates: start: 20170925
  2. COSENTYX [Suspect]
     Active Substance: SECUKINUMAB
     Dosage: 300 MG PER APPLICATION
     Route: 065
     Dates: start: 20180214
  3. COSENTYX [Suspect]
     Active Substance: SECUKINUMAB
     Dosage: 300 MG, UNK (PER APPLICATION, PRE-FILLED PEN)
     Route: 065
     Dates: start: 20171016
  4. COSENTYX [Suspect]
     Active Substance: SECUKINUMAB
     Dosage: 300 MG, UNK (PER APPLICATION, PRE-FILLED PEN)
     Route: 065
     Dates: start: 20180115
  5. COSENTYX [Suspect]
     Active Substance: SECUKINUMAB
     Dosage: 300 MG, UNK (PER APPLICATION, PRE-FILLED PEN)
     Route: 065
     Dates: start: 20171009
  6. COSENTYX [Suspect]
     Active Substance: SECUKINUMAB
     Dosage: 300 MG, UNK (PER APPLICATION, PRE-FILLED PEN)
     Route: 065
     Dates: start: 20171120
  7. CLOBETASOL PROPIONATE. [Concomitant]
     Active Substance: CLOBETASOL PROPIONATE
     Indication: PSORIASIS
     Dosage: UNK UNK, QD
     Route: 061
  8. COSENTYX [Suspect]
     Active Substance: SECUKINUMAB
     Dosage: 300 MG, UNK (PER APPLICATION, PRE-FILLED PEN)
     Route: 065
     Dates: start: 20171002
  9. COSENTYX [Suspect]
     Active Substance: SECUKINUMAB
     Dosage: 300 MG, UNK (PER APPLICATION, PRE-FILLED PEN)
     Route: 065
     Dates: start: 20171023
  10. COSENTYX [Suspect]
     Active Substance: SECUKINUMAB
     Dosage: 300 MG, UNK (PER APPLICATION, PRE-FILLED PEN)
     Route: 065
     Dates: start: 20171218
  11. BETAMETHASONE. [Concomitant]
     Active Substance: BETAMETHASONE
     Indication: PSORIASIS
     Dosage: UNK
     Route: 061
     Dates: start: 20170921, end: 20171009

REACTIONS (3)
  - Leukopenia [Recovered/Resolved]
  - Platelet count increased [Unknown]
  - Bronchitis [Recovering/Resolving]

NARRATIVE: CASE EVENT DATE: 20180101
